FAERS Safety Report 10369304 (Version 1)
Quarter: 2014Q1

REPORT INFORMATION
  Report Type: Spontaneous
  Country: US (occurrence: None)
  Receive Date: 20140306
  Receipt Date: 20140306
  Transmission Date: 20141002
  Serious: Yes (Other)
  Sender: FDA-Public Use
  Company Number: 163-21880-13074920

PATIENT
  Age: 72 Year
  Sex: Male
  Weight: 57.8 kg

DRUGS (8)
  1. REVLIMID (LENALIDOMIDE) (10 MILLIGRAM, CAPSULES) [Suspect]
     Indication: PLASMA CELL MYELOMA
     Route: 048
     Dates: start: 201007
  2. VELCADE (BORTEZOMIB) [Concomitant]
  3. DEXAMETHASONE [Concomitant]
  4. ACYCLOVIR (ACICLOVIR) [Concomitant]
  5. ALLOPURINOL [Concomitant]
  6. COREG (CARVEDILOL} [Concomitant]
  7. DIGOXIN [Concomitant]
  8. NEURONTIN (GABAPENTIN) [Concomitant]

REACTIONS (9)
  - Full blood count decreased [None]
  - Platelet count decreased [None]
  - Neuropathy peripheral [None]
  - Drug intolerance [None]
  - Immune system disorder [None]
  - Diarrhoea [None]
  - Fatigue [None]
  - White blood cell count increased [None]
  - Pyrexia [None]
